FAERS Safety Report 9121291 (Version 2)
Quarter: 2013Q2

REPORT INFORMATION
  Report Type: Spontaneous
  Country: US (occurrence: US)
  Receive Date: 20130225
  Receipt Date: 20130410
  Transmission Date: 20140414
  Serious: No
  Sender: FDA-Public Use
  Company Number: US-009507513-1301USA014037

PATIENT
  Sex: Female
  Weight: 58.5 kg

DRUGS (6)
  1. CORICIDIN HBP CHEST CONGESTION AND COUGH [Suspect]
     Indication: RESPIRATORY TRACT CONGESTION
     Dosage: 2 DF, ONCE
     Route: 048
     Dates: start: 20130107, end: 20130107
  2. CORICIDIN HBP CHEST CONGESTION AND COUGH [Suspect]
     Indication: COUGH
  3. LAMOTRIGINE [Concomitant]
     Indication: CONVULSION
     Dosage: UNK
  4. LABETALOL HYDROCHLORIDE [Concomitant]
     Indication: BLOOD PRESSURE
     Dosage: UNK
  5. CYANOCOBALAMIN [Concomitant]
     Indication: PRODUCT USED FOR UNKNOWN INDICATION
     Dosage: UNK
  6. CALCIUM (UNSPECIFIED) (+) VITAMIN D (UNSPECIFIED) [Concomitant]
     Indication: PRODUCT USED FOR UNKNOWN INDICATION
     Dosage: UNK

REACTIONS (4)
  - Blood pressure increased [Unknown]
  - Heart rate increased [Unknown]
  - Ear discomfort [Recovered/Resolved]
  - Chest discomfort [Recovered/Resolved]
